FAERS Safety Report 9666453 (Version 1)
Quarter: 2013Q4

REPORT INFORMATION
  Report Type: Spontaneous
  Country: US (occurrence: US)
  Receive Date: 20131104
  Receipt Date: 20131104
  Transmission Date: 20140711
  Serious: Yes (Other)
  Sender: FDA-Public Use
  Company Number: US-ELI_LILLY_AND_COMPANY-US201310008309

PATIENT
  Sex: Female

DRUGS (1)
  1. FORTEO [Suspect]
     Indication: BONE DISORDER
     Dosage: UNK
     Route: 065
     Dates: start: 2011

REACTIONS (5)
  - Pelvic fracture [Unknown]
  - Urticaria [Unknown]
  - Pruritus [Unknown]
  - Fall [Unknown]
  - Off label use [Unknown]
